FAERS Safety Report 18160212 (Version 1)
Quarter: 2020Q3

REPORT INFORMATION
  Report Type: Spontaneous
  Country: HK (occurrence: HK)
  Receive Date: 20200817
  Receipt Date: 20200817
  Transmission Date: 20201103
  Serious: Yes (Other)
  Sender: FDA-Public Use
  Company Number: HK-GLAXOSMITHKLINE-HK2020GSK160692

PATIENT
  Age: 74 Year
  Sex: Female
  Weight: 50 kg

DRUGS (2)
  1. ZEJULA [Suspect]
     Active Substance: NIRAPARIB
     Indication: OVARIAN CANCER RECURRENT
     Dosage: 200 MG, QD
     Route: 065
     Dates: start: 20190913, end: 20191020
  2. ZEJULA [Suspect]
     Active Substance: NIRAPARIB
     Dosage: 100 MG, QD
     Dates: start: 20191029, end: 202003

REACTIONS (8)
  - Decreased appetite [Unknown]
  - Fatigue [Unknown]
  - Anaemia [Recovered/Resolved]
  - Intestinal obstruction [Unknown]
  - Disease progression [Unknown]
  - Constipation [Unknown]
  - Thrombocytopenia [Recovered/Resolved]
  - Insomnia [Unknown]

NARRATIVE: CASE EVENT DATE: 2019
